FAERS Safety Report 8820334 (Version 1)
Quarter: 2012Q4

REPORT INFORMATION
  Report Type: 
  Country: BR (occurrence: BR)
  Receive Date: 20121002
  Receipt Date: 20121002
  Transmission Date: 20130627
  Serious: Yes (Death)
  Sender: FDA-Public Use
  Company Number: BR-NOVOPROD-360358

PATIENT
  Sex: Female

DRUGS (2)
  1. VICTOZA [Suspect]
     Indication: PRODUCT USED FOR UNKNOWN INDICATION
     Route: 065
  2. RIVOTRIL [Suspect]

REACTIONS (5)
  - Myocardial infarction [Fatal]
  - Aspiration [Fatal]
  - Syncope [Unknown]
  - Incorrect dose administered [Unknown]
  - Vomiting [Unknown]
